FAERS Safety Report 9805535 (Version 1)
Quarter: 2014Q1

REPORT INFORMATION
  Report Type: Spontaneous
  Country: US (occurrence: None)
  Receive Date: 20140108
  Receipt Date: 20140108
  Transmission Date: 20141002
  Serious: Yes (Other)
  Sender: FDA-Public Use
  Company Number: None

PATIENT
  Age: 40 Year
  Sex: Male

DRUGS (1)
  1. TECFIDERA 120 MG BIOGEN [Suspect]
     Indication: MULTIPLE SCLEROSIS
     Route: 048
     Dates: start: 20141220, end: 20141220

REACTIONS (5)
  - Hypersensitivity [None]
  - Rash [None]
  - Dyspnoea [None]
  - Pruritus [None]
  - Skin burning sensation [None]
